FAERS Safety Report 4982506-X (Version None)
Quarter: 2006Q2

REPORT INFORMATION
  Report Type: 
  Country: None (occurrence: None)
  Receive Date: 20060421
  Receipt Date: 20060407
  Transmission Date: 20061013
  Serious: Yes (Other)
  Sender: FDA-Public Use
  Company Number: 2006BH007673

PATIENT
  Age: 32 Year
  Sex: Female

DRUGS (1)
  1. PHENYTOIN [Suspect]
     Indication: CONVULSION PROPHYLAXIS
     Dosage: 3 WEEK

REACTIONS (13)
  - ALANINE AMINOTRANSFERASE INCREASED [None]
  - ASPARTATE AMINOTRANSFERASE INCREASED [None]
  - DRUG HYPERSENSITIVITY [None]
  - DYSPHAGIA [None]
  - HEADACHE [None]
  - LIVER FUNCTION TEST ABNORMAL [None]
  - LYMPHADENITIS [None]
  - LYMPHADENOPATHY [None]
  - NECROSIS [None]
  - PHARYNGOLARYNGEAL PAIN [None]
  - PYREXIA [None]
  - RASH GENERALISED [None]
  - TONSILLAR DISORDER [None]
